FAERS Safety Report 7001784-9 (Version None)
Quarter: 2010Q3

REPORT INFORMATION
  Report Type: 
  Country: None (occurrence: None)
  Receive Date: 20100920
  Receipt Date: 20070604
  Transmission Date: 20110219
  Serious: Yes (Disabling, Other)
  Sender: FDA-Public Use
  Company Number: US-ASTRAZENECA-2006UW12314

PATIENT
  Age: 580 Month
  Sex: Female
  Weight: 81.6 kg

DRUGS (6)
  1. SEROQUEL [Suspect]
     Indication: BIPOLAR DISORDER
     Route: 048
     Dates: start: 20031101
  2. SEROQUEL [Suspect]
     Route: 048
     Dates: start: 20060729
  3. ZYPREXA [Suspect]
  4. DEPAKOTE [Concomitant]
     Dates: start: 20031101
  5. EFFEXOR [Concomitant]
     Dates: start: 20031101
  6. SYNTHROID [Concomitant]
     Dates: start: 20031101

REACTIONS (3)
  - DIABETES MELLITUS [None]
  - PANCREATITIS [None]
  - TYPE 2 DIABETES MELLITUS [None]
